FAERS Safety Report 9717515 (Version 2)
Quarter: 2015Q3

REPORT INFORMATION
  Report Type: Spontaneous
  Country: US (occurrence: US)
  Receive Date: 20131127
  Receipt Date: 20150803
  Transmission Date: 20151125
  Serious: No
  Sender: FDA-Public Use
  Company Number: US-GILEAD-2009-0020219

PATIENT
  Age: 59 Year
  Sex: Male
  Weight: 113.4 kg

DRUGS (14)
  1. LOPRESSOR [Concomitant]
     Active Substance: METOPROLOL TARTRATE
  2. ZOCOR [Concomitant]
     Active Substance: SIMVASTATIN
  3. ALLOPURINOL. [Concomitant]
     Active Substance: ALLOPURINOL
  4. FERROUS SULFATE [Concomitant]
     Active Substance: FERROUS SULFATE\FERROUS SULFATE, DRIED
  5. CLARITIN [Concomitant]
     Active Substance: LORATADINE
  6. POTASSIUM CHLORIDE. [Concomitant]
     Active Substance: POTASSIUM CHLORIDE
  7. ZEMPLAR [Concomitant]
     Active Substance: PARICALCITOL
  8. NASONEX [Concomitant]
     Active Substance: MOMETASONE FUROATE
  9. ADALAT CC [Concomitant]
     Active Substance: NIFEDIPINE
  10. DEMADEX [Concomitant]
     Active Substance: TORSEMIDE
  11. LETAIRIS [Suspect]
     Active Substance: AMBRISENTAN
     Indication: PULMONARY ARTERIAL HYPERTENSION
     Route: 048
     Dates: start: 20081209
  12. ASPIRIN. [Concomitant]
     Active Substance: ASPIRIN
  13. ISOSORBIDE DINITRATE/HYDRALAZINE HYDROCHLORIDE [Concomitant]
  14. PRILOSEC [Concomitant]
     Active Substance: OMEPRAZOLE MAGNESIUM

REACTIONS (3)
  - Dyspnoea [Unknown]
  - Oedema peripheral [Unknown]
  - Oedema [Unknown]
